FAERS Safety Report 7245407-2 (Version None)
Quarter: 2011Q1

REPORT INFORMATION
  Report Type: 
  Country: None (occurrence: None)
  Receive Date: 20110126
  Receipt Date: 20110121
  Transmission Date: 20110831
  Serious: Yes (Other)
  Sender: FDA-Public Use
  Company Number: US-PFIZER INC-2011015667

PATIENT
  Sex: Female
  Weight: 68.934 kg

DRUGS (6)
  1. ADVIL PM [Suspect]
     Indication: SLEEP DISORDER
     Dosage: 200/38 MG, AS NEEDED
     Route: 048
     Dates: start: 20080101
  2. NABUMETONE [Suspect]
     Indication: GINGIVAL PAIN
     Dosage: 500 UNK, UNK
  3. NABUMETONE [Suspect]
     Indication: GINGIVAL ERYTHEMA
  4. LIPITOR [Concomitant]
     Dosage: UNK
  5. ALPRAZOLAM [Concomitant]
     Indication: ILL-DEFINED DISORDER
     Dosage: UNK
  6. NABUMETONE [Suspect]
     Indication: GINGIVAL SWELLING

REACTIONS (4)
  - DIARRHOEA [None]
  - GINGIVAL ERYTHEMA [None]
  - GINGIVAL SWELLING [None]
  - GINGIVAL PAIN [None]
